FAERS Safety Report 4285574-6 (Version None)
Quarter: 2004Q1

REPORT INFORMATION
  Report Type: 
  Country: None (occurrence: None)
  Receive Date: 20040202
  Receipt Date: 20040122
  Transmission Date: 20041129
  Serious: Yes (Hospitalization)
  Sender: FDA-Public Use
  Company Number: 2004UW01169

PATIENT
  Age: 75 Year
  Sex: Male

DRUGS (12)
  1. ZESTRIL [Suspect]
     Indication: ACUTE CORONARY SYNDROME
     Dosage: 10 MG QD PO
     Route: 048
     Dates: start: 20010611, end: 20020130
  2. LANOXIN [Suspect]
     Indication: ACUTE CORONARY SYNDROME
     Dosage: 0.13 MG QD PO
     Route: 048
     Dates: start: 20010801
  3. ATORVASTATIN [Suspect]
     Indication: ACUTE CORONARY SYNDROME
     Dosage: 40 MG QD PO
     Route: 048
     Dates: start: 20010611, end: 20020129
  4. GATIFLOXACIN [Suspect]
     Indication: ACUTE CORONARY SYNDROME
     Dosage: 400 MG QD PO
     Route: 048
     Dates: start: 20010625, end: 20020129
  5. GLUCOPHAGE [Suspect]
     Indication: ACUTE CORONARY SYNDROME
     Dosage: 500 MG BID PO
     Route: 048
     Dates: end: 20020130
  6. CARDIZEM [Suspect]
     Indication: ACUTE CORONARY SYNDROME
     Dosage: 300 MG QD PO
     Route: 048
     Dates: end: 20020130
  7. MAXZIDE [Concomitant]
  8. ALLOPURINOL [Concomitant]
  9. FLOVENT [Concomitant]
  10. FLONASE [Concomitant]
  11. ASPIRIN [Concomitant]
  12. GLUCOTROL [Concomitant]

REACTIONS (5)
  - BRADYCARDIA [None]
  - HYPOGLYCAEMIA [None]
  - HYPOTENSION [None]
  - SYNCOPE [None]
  - VISION BLURRED [None]
